FAERS Safety Report 9107282 (Version 1)
Quarter: 2013Q1

REPORT INFORMATION
  Report Type: Spontaneous
  Country: US (occurrence: US)
  Receive Date: 20130221
  Receipt Date: 20130221
  Transmission Date: 20140127
  Serious: No
  Sender: FDA-Public Use
  Company Number: US-009507513-1302USA007591

PATIENT
  Age: 10 Year
  Sex: Male
  Weight: 19.1 kg

DRUGS (11)
  1. POSACONAZOLE [Suspect]
     Indication: SINUSITIS
     Dosage: 100 MG, TID (15 MG/KG/DAY)
  2. POSACONAZOLE [Interacting]
     Dosage: 600 MG,Q6H (120 MG/KG/DAY)
  3. POSACONAZOLE [Interacting]
     Dosage: 400 MG, Q4H
  4. POSACONAZOLE [Interacting]
     Dosage: 800 MG, Q6H (160 MG/KG/GAY)
     Route: 048
  5. FAMOTIDINE [Interacting]
  6. PHENYTOIN [Interacting]
     Indication: CONVULSION PROPHYLAXIS
  7. SUCRALFATE [Interacting]
  8. SIROLIMUS [Interacting]
  9. NIFEDIPINE [Interacting]
  10. PANTOPRAZOLE [Interacting]
  11. UNSPECIFIED INGREDIENT [Interacting]

REACTIONS (4)
  - Malabsorption [Unknown]
  - Drug interaction [Unknown]
  - Vomiting [Unknown]
  - Nausea [Unknown]
